FAERS Safety Report 11724926 (Version 1)
Quarter: 2015Q4

REPORT INFORMATION
  Report Type: Spontaneous
  Country: US (occurrence: US)
  Receive Date: 20151110
  Receipt Date: 20151110
  Transmission Date: 20160304
  Serious: No
  Sender: FDA-Public Use
  Company Number: US-ELI_LILLY_AND_COMPANY-US201109004175

PATIENT
  Sex: Female

DRUGS (1)
  1. FORTEO [Suspect]
     Active Substance: TERIPARATIDE
     Indication: RHEUMATOID ARTHRITIS
     Dosage: 20 UG, QD
     Route: 065
     Dates: start: 20110620, end: 201108

REACTIONS (3)
  - Musculoskeletal discomfort [Recovering/Resolving]
  - Gait disturbance [Recovering/Resolving]
  - Off label use [Recovered/Resolved]
